FAERS Safety Report 12799646 (Version 2)
Quarter: 2016Q4

REPORT INFORMATION
  Report Type: Spontaneous
  Country: US (occurrence: US)
  Receive Date: 20160930
  Receipt Date: 20161111
  Transmission Date: 20170207
  Serious: Yes (Other)
  Sender: FDA-Public Use
  Company Number: US-VERTEX PHARMACEUTICALS-2016-005522

PATIENT

DRUGS (1)
  1. ORKAMBI [Suspect]
     Active Substance: IVACAFTOR\LUMACAFTOR
     Indication: CYSTIC FIBROSIS
     Route: 048

REACTIONS (13)
  - Respiratory failure [Unknown]
  - Abdominal pain [Unknown]
  - Nasopharyngitis [Unknown]
  - Diarrhoea [Unknown]
  - Haemoptysis [Unknown]
  - Fatigue [Unknown]
  - Liver function test increased [Unknown]
  - Infective pulmonary exacerbation of cystic fibrosis [Unknown]
  - Respiration abnormal [Unknown]
  - Nausea [Unknown]
  - Dyspnoea [Unknown]
  - Forced expiratory volume decreased [Unknown]
  - Headache [Unknown]
